FAERS Safety Report 7482061-9 (Version None)
Quarter: 2011Q2

REPORT INFORMATION
  Report Type: 
  Country: None (occurrence: None)
  Receive Date: 20110516
  Receipt Date: 20110510
  Transmission Date: 20111010
  Serious: Yes (Death, Hospitalization)
  Sender: FDA-Public Use
  Company Number: GXKR2011DE01673

PATIENT

DRUGS (17)
  1. MELNEURIN [Suspect]
     Dosage: 50 MG, UNK
     Route: 048
     Dates: start: 20071118
  2. MELNEURIN [Suspect]
     Dosage: 75 MG, UNK
     Route: 048
     Dates: end: 20071114
  3. RISPERDAL [Suspect]
     Dosage: 1 MG, UNK
     Route: 048
     Dates: start: 20071113, end: 20071120
  4. LACTULOSE [Concomitant]
     Dosage: 20 ML, UNK
     Route: 048
     Dates: end: 20071124
  5. LANITOP [Concomitant]
     Dosage: 0.1 MG, UNK
     Route: 048
     Dates: end: 20071124
  6. FURORESE [Concomitant]
     Dosage: 40 MG, UNK
     Route: 048
     Dates: end: 20071124
  7. DOMINAL [Suspect]
     Dosage: 120 MG, UNK
     Route: 048
     Dates: start: 20071114, end: 20071124
  8. RAMIPRIL [Concomitant]
     Dosage: 1.25 MG, UNK
     Route: 048
     Dates: end: 20071124
  9. METOPROLOL TARTRATE [Suspect]
     Dosage: 25 MG, UNK
     Route: 048
     Dates: end: 20071124
  10. NOVALGIN                                /SCH/ [Concomitant]
     Dosage: UNK
     Route: 048
     Dates: start: 20071124
  11. MELNEURIN [Suspect]
     Dosage: 50 MG, UNK
     Route: 048
     Dates: start: 20071124, end: 20071124
  12. ACETYL SALICYLIC ACID USP BAT [Concomitant]
     Dosage: 100 MG, UNK
     Route: 048
     Dates: end: 20071124
  13. DOMINAL [Suspect]
     Dosage: 80 MG, UNK
     Route: 048
     Dates: start: 20071113
  14. RISPERDAL [Suspect]
     Dosage: 1.5 MG, UNK
     Route: 048
     Dates: start: 20071121, end: 20071124
  15. DOMINAL [Suspect]
     Dosage: 40 MG, UNK
     Route: 048
     Dates: end: 20071112
  16. PLAVIX [Concomitant]
     Dosage: 75 MG, UNK
     Route: 048
     Dates: end: 20071124
  17. RISPERDAL [Suspect]
     Dosage: 0.5 MG, UNK
     Route: 048
     Dates: start: 20071112

REACTIONS (2)
  - DEATH [None]
  - DRUG INEFFECTIVE [None]
